FAERS Safety Report 7768515-6 (Version None)
Quarter: 2011Q3

REPORT INFORMATION
  Report Type: 
  Country: None (occurrence: None)
  Receive Date: 20110922
  Receipt Date: 20100908
  Transmission Date: 20111222
  Serious: No
  Sender: FDA-Public Use
  Company Number: US-ASTRAZENECA-2010SE42238

PATIENT
  Sex: Female
  Weight: 82.6 kg

DRUGS (3)
  1. SEROQUEL [Suspect]
     Indication: BIPOLAR DISORDER
     Route: 048
  2. PERCOCET [Concomitant]
     Indication: PAIN
  3. OXYCONTIN [Concomitant]
     Indication: PAIN

REACTIONS (6)
  - ANGER [None]
  - CRYING [None]
  - MOOD ALTERED [None]
  - INSOMNIA [None]
  - DRUG DOSE OMISSION [None]
  - MENTAL DISORDER [None]
